FAERS Safety Report 11892115 (Version 1)
Quarter: 2016Q1

REPORT INFORMATION
  Report Type: Spontaneous
  Country: BR (occurrence: BR)
  Receive Date: 20160106
  Receipt Date: 20160106
  Transmission Date: 20160526
  Serious: No
  Sender: FDA-Public Use
  Company Number: BR-SLOAN PHARMA-USW201512-000441

PATIENT
  Age: 67 Year
  Sex: Female
  Weight: 83 kg

DRUGS (2)
  1. DIOVAN AMLO FIX [Suspect]
     Active Substance: AMLODIPINE\VALSARTAN
     Indication: BLOOD PRESSURE ABNORMAL
     Route: 048
  2. TEGASEROD [Suspect]
     Active Substance: TEGASEROD
     Indication: DIVERTICULITIS
     Route: 048

REACTIONS (4)
  - Foot amputation [None]
  - Abdominal pain [Recovering/Resolving]
  - Gastrointestinal pain [Recovering/Resolving]
  - Abdominal distension [Recovering/Resolving]
